FAERS Safety Report 20333359 (Version 1)
Quarter: 2022Q1

REPORT INFORMATION
  Report Type: Spontaneous
  Country: FR (occurrence: FR)
  Receive Date: 20220113
  Receipt Date: 20220113
  Transmission Date: 20220423
  Serious: Yes (Other)
  Sender: FDA-Public Use
  Company Number: None

PATIENT
  Age: 72 Year
  Sex: Female

DRUGS (13)
  1. METHOTREXATE [Suspect]
     Active Substance: METHOTREXATE
     Indication: Central nervous system lymphoma
     Dosage: 2 GRAM
     Route: 041
     Dates: start: 20211118, end: 20211118
  2. VINCRISTINE [Suspect]
     Active Substance: VINCRISTINE
     Indication: Central nervous system lymphoma
     Dosage: 2 MG; VINCRISTINE SULFATE
     Route: 041
     Dates: start: 20211118, end: 20211118
  3. PRAVASTATIN [Suspect]
     Active Substance: PRAVASTATIN
     Indication: Dyslipidaemia
     Dosage: 20 MG; THERAPY START DATE: ASKU; PRAVASTATIN SODIUM
     Route: 048
     Dates: end: 20211121
  4. ONDANSETRON [Suspect]
     Active Substance: ONDANSETRON
     Indication: Antiemetic supportive care
     Dosage: 16 MG
     Route: 048
     Dates: start: 20211119, end: 20211120
  5. DIAMOX SEQUELS [Suspect]
     Active Substance: ACETAZOLAMIDE
     Indication: Product used for unknown indication
     Dosage: 1 G; LYOPAXHILISAT AND SOLUTION FOR PARENTERAL USE; DIAMOX 500 MG, LYOPAXHILISAT AND SOLUTION FOR PA
     Route: 042
     Dates: start: 20211120, end: 20211120
  6. RITUXIMAB [Concomitant]
     Active Substance: RITUXIMAB
     Dosage: 750 MG
     Route: 042
     Dates: start: 20211118, end: 20211118
  7. PROCARBAZINE [Concomitant]
     Active Substance: PROCARBAZINE
     Dosage: 200 MG
     Route: 048
     Dates: start: 20211118, end: 20211124
  8. NICARDIPINE [Concomitant]
     Active Substance: NICARDIPINE
     Dosage: 12 MG; NICARDIPINE HYDROCHLORIDE
     Route: 042
     Dates: start: 20211114, end: 20211202
  9. RILMENIDINE [Concomitant]
     Active Substance: RILMENIDINE
     Dosage: 2 MG; THERAPY START DATE: ASKU
     Route: 048
  10. ALLOPURINOL [Concomitant]
     Active Substance: ALLOPURINOL
     Dosage: 100 MG; THERAPY START DATE: ASKU
     Route: 048
     Dates: end: 20211122
  11. IRBESARTAN [Concomitant]
     Active Substance: IRBESARTAN
     Dosage: 300 MG; THERAPY START DATE: ASKU
     Route: 048
  12. LANSOPRAZOLE [Concomitant]
     Active Substance: LANSOPRAZOLE
     Dosage: 15 MG; THERAPY START DATE: ASKU
     Route: 048
     Dates: end: 20211120
  13. MEDROL [Concomitant]
     Active Substance: METHYLPREDNISOLONE
     Dosage: 48 MG
     Route: 048
     Dates: start: 20211106, end: 20211118

REACTIONS (1)
  - Hepatic cytolysis [Recovered/Resolved]

NARRATIVE: CASE EVENT DATE: 20211121
